FAERS Safety Report 23559360 (Version 1)
Quarter: 2024Q1

REPORT INFORMATION
  Report Type: Spontaneous
  Country: NO (occurrence: NO)
  Receive Date: 20240223
  Receipt Date: 20240223
  Transmission Date: 20240410
  Serious: Yes (Hospitalization)
  Sender: FDA-Public Use
  Company Number: None

PATIENT
  Age: 93 Year
  Sex: Female

DRUGS (1)
  1. PENICILLIN V POTASSIUM [Suspect]
     Active Substance: PENICILLIN V POTASSIUM
     Indication: Tooth infection
     Route: 048
     Dates: start: 20231224, end: 20231226

REACTIONS (4)
  - Abdominal pain [Recovered/Resolved]
  - Chest pain [Recovered/Resolved]
  - Vision blurred [Recovered/Resolved]
  - Dizziness [Recovered/Resolved]

NARRATIVE: CASE EVENT DATE: 20231224
